FAERS Safety Report 21347883 (Version 1)
Quarter: 2022Q3

REPORT INFORMATION
  Report Type: Spontaneous
  Country: BR (occurrence: None)
  Receive Date: 20220919
  Receipt Date: 20220919
  Transmission Date: 20221027
  Serious: Yes (Other)
  Sender: FDA-Public Use
  Company Number: BR-ROCHE-3178500

PATIENT
  Sex: Female
  Weight: 72 kg

DRUGS (2)
  1. CLONAZEPAM [Suspect]
     Active Substance: CLONAZEPAM
     Indication: Insomnia
     Dosage: 2 A 3 DROPS SPORADICALLY STARTED MANY YEARS AGO
     Route: 048
  2. CLONAZEPAM [Suspect]
     Active Substance: CLONAZEPAM
     Indication: Nervousness
     Dosage: 10 DROPS
     Route: 048

REACTIONS (7)
  - Breast cancer [Not Recovered/Not Resolved]
  - Insomnia [Unknown]
  - Off label use [Unknown]
  - Incorrect product administration duration [Unknown]
  - Product taste abnormal [Not Recovered/Not Resolved]
  - Product delivery mechanism issue [Unknown]
  - Product quality issue [Unknown]
